FAERS Safety Report 9831799 (Version 1)
Quarter: 2014Q1

REPORT INFORMATION
  Report Type: Spontaneous
  Country: US (occurrence: US)
  Receive Date: 20140121
  Receipt Date: 20140121
  Transmission Date: 20141002
  Serious: Yes (Hospitalization)
  Sender: FDA-Public Use
  Company Number: US-ABBVIE-14P-163-1191788-00

PATIENT
  Age: 3 Month
  Sex: Male
  Weight: 4.9 kg

DRUGS (2)
  1. SYNAGIS [Suspect]
     Indication: PRODUCT USED FOR UNKNOWN INDICATION
     Dosage: 50 MG/0.5 ML VL LIQUID/ 15 MG/KG EVERY 28-30 DAYS
     Route: 030
     Dates: start: 201311
  2. SYNAGIS [Suspect]
     Route: 030
     Dates: start: 201312

REACTIONS (1)
  - Respiratory syncytial virus infection [Recovered/Resolved]
